FAERS Safety Report 7400197-5 (Version None)
Quarter: 2011Q2

REPORT INFORMATION
  Report Type: 
  Country: None (occurrence: None)
  Receive Date: 20110407
  Receipt Date: 20110329
  Transmission Date: 20111010
  Serious: Yes (Hospitalization)
  Sender: FDA-Public Use
  Company Number: NL-ROCHE-764434

PATIENT
  Sex: Female
  Weight: 65 kg

DRUGS (7)
  1. PROXEN [Concomitant]
  2. SOTALOL [Concomitant]
  3. ROACTEMRA [Suspect]
     Indication: RHEUMATOID ARTHRITIS
     Dosage: 520MG
     Route: 042
     Dates: start: 20090101, end: 20110101
  4. METHOTREXATE [Concomitant]
     Route: 048
  5. AMOXICILLINE [Concomitant]
  6. SINTROM [Concomitant]
  7. PREDNISONE [Concomitant]

REACTIONS (3)
  - VASCULITIS [None]
  - WOUND INFECTION [None]
  - URINARY TRACT INFECTION [None]
